FAERS Safety Report 11654928 (Version 2)
Quarter: 2015Q4

REPORT INFORMATION
  Report Type: Report from Study
  Country: US (occurrence: US)
  Receive Date: 20151023
  Receipt Date: 20151027
  Transmission Date: 20160304
  Serious: Yes (Other)
  Sender: FDA-Public Use
  Company Number: US-BAYER-2015-442060

PATIENT
  Age: 66 Year
  Sex: Male

DRUGS (2)
  1. NEXAVAR [Suspect]
     Active Substance: SORAFENIB
     Indication: HEPATIC CANCER
     Dosage: 400 MG, QD
     Route: 048
     Dates: start: 20150923, end: 20151016
  2. NEXAVAR [Suspect]
     Active Substance: SORAFENIB
     Indication: BREAST CANCER

REACTIONS (3)
  - Disease progression [None]
  - Malaise [None]
  - Rash papular [None]

NARRATIVE: CASE EVENT DATE: 20151012
